FAERS Safety Report 16312280 (Version 1)
Quarter: 2019Q2

REPORT INFORMATION
  Report Type: Spontaneous
  Country: US (occurrence: US)
  Receive Date: 20190515
  Receipt Date: 20190515
  Transmission Date: 20190711
  Serious: No
  Sender: FDA-Public Use
  Company Number: US-ELI_LILLY_AND_COMPANY-US201905003550

PATIENT
  Sex: Female

DRUGS (4)
  1. BASAGLAR [Suspect]
     Active Substance: INSULIN GLARGINE
     Indication: DIABETES MELLITUS
     Dosage: 40 U, BID
     Route: 058
     Dates: start: 201903
  2. HUMALOG [Suspect]
     Active Substance: INSULIN LISPRO
     Dosage: 40 U, BID
     Route: 058
     Dates: start: 2015
  3. TOUJEO [Concomitant]
     Active Substance: INSULIN GLARGINE
     Indication: DIABETES MELLITUS
  4. HUMALOG [Suspect]
     Active Substance: INSULIN LISPRO
     Indication: DIABETES MELLITUS
     Dosage: 40 U, BID
     Route: 058
     Dates: start: 2015

REACTIONS (6)
  - Visual impairment [Recovering/Resolving]
  - Wrong patient received product [Recovering/Resolving]
  - Inappropriate schedule of product administration [Unknown]
  - Dysuria [Unknown]
  - Vulvovaginal pruritus [Recovering/Resolving]
  - Vaginal haemorrhage [Unknown]
